FAERS Safety Report 20313176 (Version 1)
Quarter: 2022Q1

REPORT INFORMATION
  Report Type: Spontaneous
  Country: FR (occurrence: FR)
  Receive Date: 20220109
  Receipt Date: 20220109
  Transmission Date: 20220423
  Serious: Yes (Hospitalization, Other)
  Sender: FDA-Public Use
  Company Number: None

PATIENT
  Age: 14 Year
  Sex: Male
  Weight: 41.9 kg

DRUGS (6)
  1. PYRAZINAMIDE [Suspect]
     Active Substance: PYRAZINAMIDE
     Indication: Bone tuberculosis
     Dosage: SPECIFIC REINTRODUCTION SCHEDULE: 1/100 D10 D21/10 D30 D4FULL DOSE D50 D6FULL DAILY DOSE D7
     Route: 048
     Dates: start: 20211124
  2. LEVOFLOXACIN [Concomitant]
     Active Substance: LEVOFLOXACIN
     Indication: Bone tuberculosis
     Route: 048
  3. ETHAMBUTOL HYDROCHLORIDE [Concomitant]
     Active Substance: ETHAMBUTOL HYDROCHLORIDE
     Indication: Bone tuberculosis
     Dosage: SPECIFIC REINTRODUCTION SCHEDULE: 1/100 D10 D21/10 D30 D4FULL DOSE D50 D6FULL DAILY DOSE D7
     Route: 048
     Dates: start: 20211130
  4. RIMIFON [Concomitant]
     Active Substance: ISONIAZID
     Indication: Bone tuberculosis
     Dosage: SPECIFIC REINTRODUCTION SCHEDULE: 1/100 D10 D21/10 D30 D4FULL DOSE D50 D6FULL DAILY DOSE D7
     Route: 048
     Dates: start: 20211113
  5. LINEZOLID [Concomitant]
     Active Substance: LINEZOLID
     Indication: Bone tuberculosis
     Route: 048
  6. RIFAMPIN [Suspect]
     Active Substance: RIFAMPIN
     Indication: Bone tuberculosis
     Dosage: SPECIFIC REINTRODUCTION SCHEDULE: 1/100 D10 D21/10 D30 D4FULL DOSE D50 D6FULL DAILY DOSE D7
     Route: 048
     Dates: start: 20211207

REACTIONS (1)
  - Mixed liver injury [Recovering/Resolving]

NARRATIVE: CASE EVENT DATE: 20211209
